FAERS Safety Report 24920906 (Version 2)
Quarter: 2025Q1

REPORT INFORMATION
  Report Type: Spontaneous
  Country: JP (occurrence: JP)
  Receive Date: 20250204
  Receipt Date: 20250306
  Transmission Date: 20250409
  Serious: Yes (Hospitalization, Other)
  Sender: GILEAD
  Company Number: JP-GILEAD-2024-0691527

PATIENT
  Age: 75 Year
  Sex: Male

DRUGS (6)
  1. BIKTARVY [Suspect]
     Active Substance: BICTEGRAVIR SODIUM\EMTRICITABINE\TENOFOVIR ALAFENAMIDE FUMARATE
     Indication: HIV infection
     Dosage: 1 DOSAGE FORM, QD
     Route: 048
     Dates: start: 20231201
  2. LANSOPRAZOLE OD CHEMIPHAR [Concomitant]
  3. EDOXABAN TOSYLATE [Concomitant]
     Active Substance: EDOXABAN TOSYLATE
  4. ALFACALCIDOL [Concomitant]
     Active Substance: ALFACALCIDOL
  5. SPIRONOLACTONE [Concomitant]
     Active Substance: SPIRONOLACTONE
  6. AZOSEMIDE [Concomitant]
     Active Substance: AZOSEMIDE

REACTIONS (1)
  - Pneumonia aspiration [Recovered/Resolved]
